FAERS Safety Report 8444079-9 (Version None)
Quarter: 2012Q2

REPORT INFORMATION
  Report Type: 
  Country: None (occurrence: None)
  Receive Date: 20120323
  Receipt Date: 20110708
  Transmission Date: 20120825
  Serious: Yes (Hospitalization)
  Sender: FDA-Public Use
  Company Number: 163-21880-11070766

PATIENT
  Age: 84 Year
  Sex: Female

DRUGS (10)
  1. VICODIN HP (VICODIN) [Concomitant]
  2. MULTIVITAMIN [Concomitant]
  3. ENALAPRIL MALEATE [Concomitant]
  4. IRON (IRON) [Concomitant]
  5. LENALIDOMIDE [Suspect]
     Indication: MYELODYSPLASTIC SYNDROME
     Dosage: 10 MG, PO
     Route: 048
     Dates: start: 20101208
  6. COLACE (DOCUSATE SODIUM) [Concomitant]
  7. PROCHLORPERAZINE MALEATE (PROCHLORPERAZINE MALEATE) [Concomitant]
  8. PROTONIX [Concomitant]
  9. BENADRYL ALLERGY (BENADRYL ALLERGY) [Concomitant]
  10. XANAX [Concomitant]

REACTIONS (1)
  - ANAEMIA [None]
